FAERS Safety Report 13230957 (Version 1)
Quarter: 2017Q1

REPORT INFORMATION
  Report Type: Other
  Country: TR (occurrence: TR)
  Receive Date: 20170214
  Receipt Date: 20170214
  Transmission Date: 20170428
  Serious: Yes (Other)
  Sender: FDA-Public Use
  Company Number: TR-RARE DISEASE THERAPEUTICS, INC.-1063069

PATIENT
  Age: 3 Year
  Sex: Female

DRUGS (4)
  1. PURIXAN [Suspect]
     Active Substance: MERCAPTOPURINE
     Indication: ACUTE LYMPHOCYTIC LEUKAEMIA
     Route: 048
  2. DEXAMETHASONE. [Concomitant]
     Active Substance: DEXAMETHASONE
  3. VINCRISTINE [Concomitant]
     Active Substance: VINCRISTINE
  4. METHOTREXATE. [Concomitant]
     Active Substance: METHOTREXATE

REACTIONS (1)
  - Immune thrombocytopenic purpura [Recovered/Resolved]
